APPROVED DRUG PRODUCT: GLYBURIDE
Active Ingredient: GLYBURIDE
Strength: 5MG
Dosage Form/Route: TABLET;ORAL
Application: A206483 | Product #003 | TE Code: AB1
Applicant: ORIENT PHARMA CO LTD
Approved: Feb 22, 2019 | RLD: No | RS: No | Type: RX